FAERS Safety Report 4646198-1 (Version None)
Quarter: 2005Q2

REPORT INFORMATION
  Report Type: 
  Country: None (occurrence: None)
  Receive Date: 20050425
  Receipt Date: 20050413
  Transmission Date: 20051028
  Serious: Yes (Hospitalization)
  Sender: FDA-Public Use
  Company Number: HQWYE529011JAN05

PATIENT
  Age: 90 Year
  Sex: Female

DRUGS (8)
  1. CORDARONE [Suspect]
     Indication: ATRIAL FIBRILLATION
     Dosage: 200 MG 1X PER 1 DAY, ORAL
     Route: 048
     Dates: start: 20041116, end: 20041122
  2. ALLOPURINOL [Suspect]
     Dosage: 200 MG 1X PER 1 DAY, ORAL
     Route: 048
     Dates: start: 20041116, end: 20041122
  3. ALLOPURINOL [Suspect]
     Dosage: 200 MG 1X PER 1 DAY, ORAL
     Route: 048
     Dates: start: 20041123
  4. PREVISCAN (FLUINDIONE, ) [Suspect]
     Dosage: 5 MG 1X PER 1 DAY, ORAL
     Route: 048
     Dates: start: 20041116, end: 20041122
  5. ZOCOR [Suspect]
     Dosage: 1 UNIT DAILY, ORAL
     Route: 048
     Dates: start: 20041116, end: 20041122
  6. DIGOXIN [Concomitant]
  7. FUROSEMIDE [Concomitant]
  8. BISOPROLOL FUMARATE [Concomitant]

REACTIONS (9)
  - ARRHYTHMIA [None]
  - DRUG INTERACTION [None]
  - FALL [None]
  - HEAD INJURY [None]
  - INTERNATIONAL NORMALISED RATIO INCREASED [None]
  - MALAISE [None]
  - PERIORBITAL HAEMATOMA [None]
  - RENAL FAILURE [None]
  - SHOULDER PAIN [None]
